FAERS Safety Report 7715913-2 (Version None)
Quarter: 2011Q3

REPORT INFORMATION
  Report Type: 
  Country: None (occurrence: None)
  Receive Date: 20110823
  Receipt Date: 20110725
  Transmission Date: 20111222
  Serious: Yes (Death, Other)
  Sender: FDA-Public Use
  Company Number: 2011166651

PATIENT
  Age: 48 Year
  Sex: Female

DRUGS (3)
  1. GEMTUZUMAB OZOGAMICIN (GEMTUZUMAB OZOGAMICIN) [Suspect]
     Indication: ACUTE MYELOID LEUKAEMIA
     Dates: start: 20080913
  2. CYTARABINE [Suspect]
     Indication: ACUTE MYELOID LEUKAEMIA
     Dosage: 200 MG/M2,1X/DAY, INTRAVENOUS
     Route: 042
     Dates: start: 20080910, end: 20080912
  3. CERUBIDINE [Suspect]
     Indication: ACUTE MYELOID LEUKAEMIA
     Dosage: 60 MG/M2, 1X/DAY, INTRAVENOUS
     Route: 042
     Dates: start: 20080910, end: 20080912

REACTIONS (6)
  - CYTOLYTIC HEPATITIS [None]
  - FUNGAL INFECTION [None]
  - CULTURE STOOL POSITIVE [None]
  - BACTERIAL TEST POSITIVE [None]
  - SEPSIS [None]
  - CARDIAC ARREST [None]
